FAERS Safety Report 24721586 (Version 1)
Quarter: 2024Q4

REPORT INFORMATION
  Report Type: Spontaneous
  Country: CA (occurrence: CA)
  Receive Date: 20241211
  Receipt Date: 20241211
  Transmission Date: 20250115
  Serious: Yes (Hospitalization)
  Sender: B BRAUN
  Company Number: CA-B.Braun Medical Inc.-2166864

PATIENT
  Age: 24 Month
  Sex: Male
  Weight: 10 kg

DRUGS (3)
  1. SODIUM CHLORIDE [Suspect]
     Active Substance: SODIUM CHLORIDE
  2. DISOPYRAMIDE [Concomitant]
     Active Substance: DISOPYRAMIDE
  3. SOTALOL [Concomitant]
     Active Substance: SOTALOL

REACTIONS (10)
  - Blood glucose abnormal [Recovering/Resolving]
  - Somnolence [Recovering/Resolving]
  - Respiratory distress [Recovering/Resolving]
  - Oxygen therapy [Recovering/Resolving]
  - Listless [Recovering/Resolving]
  - Hypotension [Recovering/Resolving]
  - Hypervolaemia [Recovering/Resolving]
  - General physical health deterioration [Recovering/Resolving]
  - Dyspnoea [Recovering/Resolving]
  - Blood pressure decreased [Recovering/Resolving]
